FAERS Safety Report 5053668-3 (Version None)
Quarter: 2006Q3

REPORT INFORMATION
  Report Type: 
  Country: None (occurrence: None)
  Receive Date: 20060718
  Receipt Date: 20060213
  Transmission Date: 20061208
  Serious: Yes (Other)
  Sender: FDA-Public Use
  Company Number: GB-ROCHE-436986

PATIENT
  Age: 35 Year
  Sex: Male
  Weight: 95 kg

DRUGS (4)
  1. ACCUTANE [Suspect]
     Indication: DRUG USE FOR UNKNOWN INDICATION
     Route: 065
     Dates: end: 20051215
  2. ACCUTANE [Suspect]
     Route: 065
     Dates: start: 20051215
  3. ACCUTANE [Suspect]
     Route: 065
     Dates: start: 20060113
  4. PHENELZINE [Suspect]
     Indication: DEPRESSION
     Route: 048

REACTIONS (3)
  - BLOOD PRESSURE INCREASED [None]
  - DEPRESSED MOOD [None]
  - PROTEINURIA [None]
